FAERS Safety Report 10926527 (Version 2)
Quarter: 2015Q2

REPORT INFORMATION
  Report Type: Report from Study
  Country: US (occurrence: US)
  Receive Date: 20150318
  Receipt Date: 20150520
  Transmission Date: 20150821
  Serious: Yes (Death, Hospitalization)
  Sender: FDA-Public Use
  Company Number: US-009507513-1503USA005603

PATIENT
  Age: 53 Year
  Sex: Female

DRUGS (5)
  1. ENTOCORT EC [Concomitant]
     Active Substance: BUDESONIDE
     Dosage: 9 MG, QAM
     Route: 048
  2. PEMBROLIZUMAB. [Suspect]
     Active Substance: PEMBROLIZUMAB
     Indication: METASTATIC MALIGNANT MELANOMA
     Dosage: 2 MG/KG, Q3W
     Route: 042
     Dates: start: 20140730, end: 20140730
  3. BACTRIM DS [Concomitant]
     Active Substance: SULFAMETHOXAZOLE\TRIMETHOPRIM
     Dosage: 1 DF, 3 TIMES A WEEK
     Route: 048
     Dates: start: 20140730
  4. PROTONIX [Concomitant]
     Active Substance: PANTOPRAZOLE SODIUM
     Dosage: 40 MG, QD
     Route: 048
  5. DELTASONE [Concomitant]
     Active Substance: PREDNISONE
     Dosage: INSTRUCTIONS FOR USE: TAKE AS DIRECTED BY PHYSICIAN.
     Route: 048

REACTIONS (2)
  - Malignant neoplasm progression [Fatal]
  - Malignant neoplasm progression [Not Recovered/Not Resolved]

NARRATIVE: CASE EVENT DATE: 20140730
